FAERS Safety Report 9610978 (Version 2)
Quarter: 2013Q4

REPORT INFORMATION
  Report Type: Spontaneous
  Country: US (occurrence: US)
  Receive Date: 20131009
  Receipt Date: 20131009
  Transmission Date: 20140711
  Serious: Yes (Hospitalization, Disabling)
  Sender: FDA-Public Use
  Company Number: US-GLAXOSMITHKLINE-A0862400A

PATIENT
  Age: 39 Year
  Sex: Male
  Weight: 125 kg

DRUGS (4)
  1. AVANDIA [Suspect]
     Indication: DIABETES MELLITUS
     Dosage: 4MG TWICE PER DAY
     Route: 048
     Dates: start: 20000124, end: 2002
  2. PRAVACHOL [Concomitant]
  3. TOPROL XL [Concomitant]
  4. ACCUPRIL [Concomitant]

REACTIONS (2)
  - Myocardial infarction [Unknown]
  - Coronary artery disease [Unknown]
